FAERS Safety Report 6917384-2 (Version None)
Quarter: 2010Q3

REPORT INFORMATION
  Report Type: 
  Country: None (occurrence: None)
  Receive Date: 20100810
  Receipt Date: 20100729
  Transmission Date: 20110219
  Serious: No
  Sender: FDA-Public Use
  Company Number: B0666053A

PATIENT
  Sex: Female

DRUGS (1)
  1. ZANTAC RELIEF 75 [Suspect]
     Route: 065
     Dates: start: 20100617, end: 20100617

REACTIONS (12)
  - BACK PAIN [None]
  - CHEST PAIN [None]
  - DYSPNOEA [None]
  - ERYTHEMA [None]
  - FEELING ABNORMAL [None]
  - MORBID THOUGHTS [None]
  - MUSCLE TWITCHING [None]
  - ORAL PRURITUS [None]
  - PALPITATIONS [None]
  - PARAESTHESIA ORAL [None]
  - PRURITUS GENERALISED [None]
  - THROAT IRRITATION [None]
